FAERS Safety Report 9845446 (Version 2)
Quarter: 2014Q2

REPORT INFORMATION
  Report Type: Spontaneous
  Country: US (occurrence: None)
  Receive Date: 20140122
  Receipt Date: 20140404
  Transmission Date: 20141212
  Serious: Yes (Hospitalization)
  Sender: FDA-Public Use
  Company Number: 2013-US-004408

PATIENT
  Age: 31 Year
  Sex: Female
  Weight: 170 kg

DRUGS (1)
  1. XYREM [Suspect]
     Indication: NARCOLEPSY
     Dosage: 2.25 G, BID, ORAL
     Route: 048
     Dates: start: 201207, end: 2012

REACTIONS (4)
  - Abortion spontaneous [None]
  - Anxiety [None]
  - Exposure during pregnancy [None]
  - Maternal exposure before pregnancy [None]
